FAERS Safety Report 8378706-1 (Version None)
Quarter: 2012Q2

REPORT INFORMATION
  Report Type: 
  Country: None (occurrence: None)
  Receive Date: 20120522
  Receipt Date: 20120517
  Transmission Date: 20120825
  Serious: Yes (Other)
  Sender: FDA-Public Use
  Company Number: US-MERCK-1205USA02901

PATIENT
  Age: 76 Year
  Sex: Male
  Weight: 75 kg

DRUGS (11)
  1. LOSARTAN POTASSIUM [Suspect]
     Indication: HEART RATE INCREASED
     Route: 048
     Dates: start: 20120101, end: 20120111
  2. INSULIN [Concomitant]
     Indication: DIABETES MELLITUS
     Route: 065
  3. COZAAR [Suspect]
     Indication: BLOOD PRESSURE INCREASED
     Route: 048
  4. LOSARTAN POTASSIUM [Suspect]
     Indication: HYPERTENSION
     Route: 048
     Dates: start: 20120101, end: 20120111
  5. METOPROLOL [Concomitant]
     Indication: HEART RATE INCREASED
     Route: 065
     Dates: start: 20070101
  6. TRANDOLAPRIL [Suspect]
     Indication: HYPERTENSION
     Route: 065
     Dates: start: 20070101
  7. COZAAR [Suspect]
     Indication: HEART RATE
     Route: 048
  8. TRANDOLAPRIL [Suspect]
     Indication: HEART RATE INCREASED
     Route: 065
     Dates: start: 20070101
  9. METFORMIN [Concomitant]
     Indication: DIABETES MELLITUS
     Route: 065
  10. GLYBURIDE [Concomitant]
     Indication: DIABETES MELLITUS
     Route: 065
  11. METOPROLOL [Concomitant]
     Indication: HYPERTENSION
     Route: 065
     Dates: start: 20070101

REACTIONS (2)
  - HEADACHE [None]
  - BLOOD PRESSURE SYSTOLIC INCREASED [None]
